FAERS Safety Report 5191568-9 (Version None)
Quarter: 2006Q4

REPORT INFORMATION
  Report Type: 
  Country: None (occurrence: None)
  Receive Date: 20061219
  Receipt Date: 20061207
  Transmission Date: 20070319
  Serious: Yes (Other)
  Sender: FDA-Public Use
  Company Number: US-2006-038973

PATIENT
  Age: 35 Year
  Sex: Female

DRUGS (1)
  1. MAGNEVIST [Suspect]
     Indication: NUCLEAR MAGNETIC RESONANCE IMAGING
     Dosage: 0.1 MMOL/KG, 1 DOSE, INTRAVENOUS
     Route: 042

REACTIONS (2)
  - PNEUMONIA [None]
  - PYREXIA [None]
